FAERS Safety Report 24630402 (Version 1)
Quarter: 2024Q4

REPORT INFORMATION
  Report Type: Other
  Country: AT (occurrence: AT)
  Receive Date: 20241118
  Receipt Date: 20241118
  Transmission Date: 20250115
  Serious: Yes (Hospitalization, Other)
  Sender: ORBION PHARMACEUTICALS PRIVATE LIMITED
  Company Number: AT-OrBion Pharmaceuticals Private Limited-2165247

PATIENT
  Age: 29 Year
  Sex: Female

DRUGS (1)
  1. DIVALPROEX SODIUM [Suspect]
     Active Substance: DIVALPROEX SODIUM
     Indication: New onset refractory status epilepticus

REACTIONS (1)
  - Brain oedema [Recovering/Resolving]
